FAERS Safety Report 5355050-8 (Version None)
Quarter: 2007Q2

REPORT INFORMATION
  Report Type: 
  Country: None (occurrence: None)
  Receive Date: 20070521
  Receipt Date: 20070416
  Transmission Date: 20071010
  Serious: No
  Sender: FDA-Public Use
  Company Number: WAES 0704USA03053

PATIENT
  Age: 58 Year
  Sex: Female

DRUGS (6)
  1. JANUVIA [Suspect]
     Indication: DIABETES MELLITUS
     Dosage: 100 MG/DAILY/PO
     Route: 048
     Dates: start: 20070414
  2. FLEXERIL [Concomitant]
  3. KLONOPIN [Concomitant]
  4. NAPROSYN [Concomitant]
  5. [THERAPY UNSPECIFIED] [Concomitant]
  6. MULTI-VITAMINS [Concomitant]

REACTIONS (3)
  - ASTHENIA [None]
  - FATIGUE [None]
  - LAZINESS [None]
